FAERS Safety Report 6407068-1 (Version None)
Quarter: 2009Q4

REPORT INFORMATION
  Report Type: 
  Country: None (occurrence: None)
  Receive Date: 20091020
  Receipt Date: 20091014
  Transmission Date: 20100525
  Serious: Yes (Hospitalization)
  Sender: FDA-Public Use
  Company Number: FR-WYE-G04623809

PATIENT
  Sex: Male

DRUGS (9)
  1. TAZOCILLINE [Suspect]
     Dosage: UNKNOWN
     Route: 042
     Dates: start: 20090818, end: 20090825
  2. ARIXTRA [Suspect]
     Dosage: UNKNOWN
     Route: 058
     Dates: start: 20090818, end: 20090911
  3. PERFALGAN [Suspect]
     Dosage: UNKNOWN
     Dates: start: 20090806, end: 20090909
  4. TAVANIC [Suspect]
     Dosage: UNKNOWN
     Dates: start: 20090828, end: 20090908
  5. TAVANIC [Suspect]
     Dosage: UNKNOWN
     Dates: start: 20090910, end: 20090918
  6. RIFADIN [Suspect]
     Dosage: UNKNOWN
     Dates: start: 20090828, end: 20090910
  7. VANCOMYCIN [Suspect]
     Dosage: UNKNOWN
     Route: 042
     Dates: start: 20090818, end: 20090825
  8. FUNGIZONE [Suspect]
     Dosage: UNKNOWN
     Dates: start: 20090818, end: 20090910
  9. PIPERACILLIN [Suspect]
     Dosage: UNKNOWN
     Route: 042
     Dates: start: 20090824, end: 20090908

REACTIONS (1)
  - DRUG RASH WITH EOSINOPHILIA AND SYSTEMIC SYMPTOMS [None]
